FAERS Safety Report 25452299 (Version 1)
Quarter: 2025Q2

REPORT INFORMATION
  Report Type: Spontaneous
  Country: DE (occurrence: DE)
  Receive Date: 20250618
  Receipt Date: 20250618
  Transmission Date: 20250716
  Serious: Yes (Hospitalization)
  Sender: MYLAN
  Company Number: DE-002147023-NVSC2020DE323262

PATIENT
  Sex: Female

DRUGS (20)
  1. CELECOXIB [Suspect]
     Active Substance: CELECOXIB
     Indication: Psoriatic arthropathy
  2. CELECOXIB [Suspect]
     Active Substance: CELECOXIB
     Route: 065
  3. CELECOXIB [Suspect]
     Active Substance: CELECOXIB
     Route: 065
  4. CELECOXIB [Suspect]
     Active Substance: CELECOXIB
  5. COSENTYX [Suspect]
     Active Substance: SECUKINUMAB
     Indication: Psoriatic arthropathy
     Dates: start: 20180424, end: 20191103
  6. COSENTYX [Suspect]
     Active Substance: SECUKINUMAB
     Dates: start: 20180424, end: 20191103
  7. COSENTYX [Suspect]
     Active Substance: SECUKINUMAB
     Route: 042
     Dates: start: 20180424, end: 20191103
  8. COSENTYX [Suspect]
     Active Substance: SECUKINUMAB
     Route: 042
     Dates: start: 20180424, end: 20191103
  9. COSENTYX [Suspect]
     Active Substance: SECUKINUMAB
  10. COSENTYX [Suspect]
     Active Substance: SECUKINUMAB
  11. COSENTYX [Suspect]
     Active Substance: SECUKINUMAB
     Route: 065
  12. COSENTYX [Suspect]
     Active Substance: SECUKINUMAB
     Route: 065
  13. CIMZIA [Concomitant]
     Active Substance: CERTOLIZUMAB PEGOL
     Indication: Product used for unknown indication
  14. CIMZIA [Concomitant]
     Active Substance: CERTOLIZUMAB PEGOL
  15. CIMZIA [Concomitant]
     Active Substance: CERTOLIZUMAB PEGOL
     Route: 065
  16. CIMZIA [Concomitant]
     Active Substance: CERTOLIZUMAB PEGOL
     Route: 065
  17. CIMZIA [Concomitant]
     Active Substance: CERTOLIZUMAB PEGOL
  18. CIMZIA [Concomitant]
     Active Substance: CERTOLIZUMAB PEGOL
  19. CIMZIA [Concomitant]
     Active Substance: CERTOLIZUMAB PEGOL
     Route: 065
  20. CIMZIA [Concomitant]
     Active Substance: CERTOLIZUMAB PEGOL
     Route: 065

REACTIONS (1)
  - Osteoarthritis [Unknown]

NARRATIVE: CASE EVENT DATE: 20191203
